FAERS Safety Report 23221619 (Version 1)
Quarter: 2023Q4

REPORT INFORMATION
  Report Type: Spontaneous
  Country: US (occurrence: None)
  Receive Date: 20231123
  Receipt Date: 20231123
  Transmission Date: 20240109
  Serious: Yes (Disabling, Other)
  Sender: FDA-Public Use
  Company Number: US-ROCHE-3458607

PATIENT
  Sex: Female
  Weight: 52.664 kg

DRUGS (1)
  1. AVASTIN [Suspect]
     Active Substance: BEVACIZUMAB
     Indication: Neovascular age-related macular degeneration
     Route: 050
     Dates: start: 2014

REACTIONS (7)
  - Off label use [Unknown]
  - Eye infection [Recovered/Resolved]
  - Disease progression [Not Recovered/Not Resolved]
  - Visual impairment [Not Recovered/Not Resolved]
  - Retinal vein occlusion [Recovering/Resolving]
  - Body height decreased [Unknown]
  - Blindness [Not Recovered/Not Resolved]

NARRATIVE: CASE EVENT DATE: 20170101
